FAERS Safety Report 9036661 (Version 4)
Quarter: 2013Q2

REPORT INFORMATION
  Report Type: Spontaneous
  Country: US (occurrence: None)
  Receive Date: 20121205
  Receipt Date: 20130522
  Transmission Date: 20140414
  Serious: Yes (Other)
  Sender: FDA-Public Use
  Company Number: 2012034088

PATIENT
  Sex: Female
  Weight: 62 kg

DRUGS (5)
  1. PRIVIGEN [Suspect]
     Indication: PRIMARY IMMUNODEFICIENCY SYNDROME
     Dosage: (BEGINNING BETWEEN APRIL AND JUNE OF 2012, WITH APPROXIMATELY 4-5 INFUSIONS),  (INTRAVENOUS  (NOT OTHERWISE SPECIFIED))
     Route: 042
     Dates: start: 20121121, end: 20121126
  2. PRIVIGEN [Suspect]
     Indication: STIFF PERSON SYNDROME
     Dosage: (BEGINNING BETWEEN APRIL AND JUNE OF 2012, WITH APPROXIMATELY 4-5 INFUSIONS),  (INTRAVENOUS  (NOT OTHERWISE SPECIFIED))
     Route: 042
     Dates: start: 20121121, end: 20121126
  3. BACLOFEN [Suspect]
  4. DIAZEPAM (DIAZEPAM) [Concomitant]
  5. MUSCLE RELAXANT (MUSCLE RELAXANTS) [Concomitant]

REACTIONS (14)
  - Muscle spasms [None]
  - Pain [None]
  - Back pain [None]
  - Heart rate increased [None]
  - Hyperhidrosis [None]
  - Disability [None]
  - Fatigue [None]
  - Off label use [None]
  - Incorrect drug administration rate [None]
  - Muscle spasms [None]
  - Diplegia [None]
  - Discomfort [None]
  - Contusion [None]
  - Scar [None]
